FAERS Safety Report 19144902 (Version 1)
Quarter: 2021Q2

REPORT INFORMATION
  Report Type: Spontaneous
  Country: US (occurrence: US)
  Receive Date: 20210416
  Receipt Date: 20210416
  Transmission Date: 20210717
  Serious: Yes (Disabling)
  Sender: FDA-Public Use
  Company Number: None

PATIENT
  Age: 66 Year
  Sex: Female
  Weight: 95.85 kg

DRUGS (19)
  1. FRONT WHEEL WALKER [Concomitant]
  2. MAXZIDE [Concomitant]
     Active Substance: HYDROCHLOROTHIAZIDE\TRIAMTERENE
  3. WELLBUTRIN [Concomitant]
     Active Substance: BUPROPION HYDROCHLORIDE
  4. FISH OIL [Concomitant]
     Active Substance: FISH OIL
  5. CRESTOR [Concomitant]
     Active Substance: ROSUVASTATIN CALCIUM
  6. PRILOSEC [Concomitant]
     Active Substance: OMEPRAZOLE MAGNESIUM
  7. HIPREX W/ VIT C [Concomitant]
  8. VIT D [Concomitant]
     Active Substance: VITAMIN D NOS
  9. BOTOX [Suspect]
     Active Substance: ONABOTULINUMTOXINA
     Indication: NEUROGENIC BLADDER
     Dosage: ?          OTHER ROUTE:INJECTED INTO BLADDER?
  10. VITAMIN C [Concomitant]
     Active Substance: ASCORBIC ACID
  11. VESICARE [Concomitant]
     Active Substance: SOLIFENACIN SUCCINATE
  12. GLUCOSAMINE W/HYALURONIC ACID [Concomitant]
  13. CPAP SYNTHROID [Concomitant]
  14. IVANZ HOME IV [Concomitant]
  15. PROBIOTICS [Concomitant]
     Active Substance: PROBIOTICS NOS
  16. CYTOMEL [Concomitant]
     Active Substance: LIOTHYRONINE SODIUM
  17. VITAMINS NOS [Concomitant]
     Active Substance: VITAMINS
  18. PRISTIQ EXTENDED?RELEASE [Concomitant]
     Active Substance: DESVENLAFAXINE SUCCINATE
  19. TOPAMAX [Concomitant]
     Active Substance: TOPIRAMATE

REACTIONS (1)
  - Urinary incontinence [None]

NARRATIVE: CASE EVENT DATE: 20151101
